FAERS Safety Report 8330413-7 (Version None)
Quarter: 2012Q2

REPORT INFORMATION
  Report Type: 
  Country: None (occurrence: None)
  Receive Date: 20120502
  Receipt Date: 20120405
  Transmission Date: 20120825
  Serious: No
  Sender: FDA-Public Use
  Company Number: US-AMGEN-USASP2011039863

PATIENT
  Age: 70 Year
  Sex: Female

DRUGS (2)
  1. ENBREL [Suspect]
     Indication: RHEUMATOID ARTHRITIS
     Dosage: 50 MG, QWK
     Dates: start: 20110727
  2. METHOTREXATE [Concomitant]
     Dosage: UNK
     Route: 051

REACTIONS (5)
  - DIARRHOEA [None]
  - HYPOGLYCAEMIA [None]
  - MALAISE [None]
  - ABDOMINAL PAIN UPPER [None]
  - INSOMNIA [None]
